FAERS Safety Report 14607215 (Version 1)
Quarter: 2018Q1

REPORT INFORMATION
  Report Type: Spontaneous
  Country: US (occurrence: US)
  Receive Date: 20180307
  Receipt Date: 20180307
  Transmission Date: 20180509
  Serious: Yes (Hospitalization, Other)
  Sender: FDA-Public Use
  Company Number: US-JNJFOC-20180237966

PATIENT
  Age: 64 Year
  Sex: Male
  Weight: 79.7 kg

DRUGS (17)
  1. ZESTRIL [Concomitant]
     Active Substance: LISINOPRIL
     Route: 048
  2. ENTRESTO [Concomitant]
     Active Substance: SACUBITRIL\VALSARTAN
     Dosage: 24-26 MG
     Route: 065
  3. ULTRAM [Concomitant]
     Active Substance: TRAMADOL HYDROCHLORIDE
     Indication: PAIN
     Route: 048
  4. LIPITOR [Concomitant]
     Active Substance: ATORVASTATIN CALCIUM
     Indication: PAIN
     Route: 048
  5. COQ10 OMEGA 3 [Concomitant]
     Route: 048
  6. MEVACOR [Concomitant]
     Active Substance: LOVASTATIN
     Route: 065
  7. ASPIRIN. [Concomitant]
     Active Substance: ASPIRIN
     Route: 048
  8. COREG [Concomitant]
     Active Substance: CARVEDILOL
     Dosage: HALF TABLET IN AM, 1 IN PM
     Route: 048
  9. EFFIENT [Concomitant]
     Active Substance: PRASUGREL HYDROCHLORIDE
     Route: 048
  10. YOSPRALA [Concomitant]
     Active Substance: ASPIRIN\OMEPRAZOLE
     Dosage: 24-26 MG
     Route: 048
  11. VITAMIN D3 [Concomitant]
     Active Substance: CHOLECALCIFEROL
     Route: 048
  12. DILTIAZEM. [Concomitant]
     Active Substance: DILTIAZEM
     Indication: HEART RATE INCREASED
     Route: 048
  13. PRINIVIL [Concomitant]
     Active Substance: LISINOPRIL
     Route: 048
  14. ZETIA [Concomitant]
     Active Substance: EZETIMIBE
     Route: 048
  15. LASIX [Concomitant]
     Active Substance: FUROSEMIDE
     Dosage: O.5 TABLET ONCE A DAY(40 MG ONCE A DAY)
     Route: 048
  16. LASIX [Concomitant]
     Active Substance: FUROSEMIDE
     Route: 048
  17. XARELTO [Suspect]
     Active Substance: RIVAROXABAN
     Indication: PRODUCT USED FOR UNKNOWN INDICATION
     Dosage: WITH DINNER
     Route: 048

REACTIONS (4)
  - Ischaemic cardiomyopathy [Recovering/Resolving]
  - Type V hyperlipidaemia [Unknown]
  - Cardiac failure congestive [Unknown]
  - Atrial fibrillation [Unknown]

NARRATIVE: CASE EVENT DATE: 201701
